FAERS Safety Report 24806669 (Version 2)
Quarter: 2025Q1

REPORT INFORMATION
  Report Type: Spontaneous
  Country: FR (occurrence: FR)
  Receive Date: 20250104
  Receipt Date: 20250113
  Transmission Date: 20250408
  Serious: Yes (Other)
  Sender: AUROBINDO
  Company Number: FR-AFSSAPS-LY2024001933

PATIENT
  Age: 73 Year
  Sex: Male
  Weight: 58 kg

DRUGS (2)
  1. LINEZOLID [Suspect]
     Active Substance: LINEZOLID
     Indication: Sepsis
     Dosage: 1200 MILLIGRAM, ONCE A DAY
     Route: 048
     Dates: start: 20241121, end: 20241210
  2. ERTAPENEM [Suspect]
     Active Substance: ERTAPENEM
     Indication: Sepsis
     Dosage: 1 GRAM, ONCE A DAY
     Route: 051
     Dates: start: 20241121, end: 20241210

REACTIONS (1)
  - Bicytopenia [Recovered/Resolved]

NARRATIVE: CASE EVENT DATE: 20241209
